FAERS Safety Report 12904411 (Version 1)
Quarter: 2016Q4

REPORT INFORMATION
  Report Type: Spontaneous
  Country: US (occurrence: US)
  Receive Date: 20161102
  Receipt Date: 20161102
  Transmission Date: 20170207
  Serious: Yes (Other)
  Sender: FDA-Public Use
  Company Number: US-GALDERMA-US16007315

PATIENT
  Age: 15 Year
  Sex: Male

DRUGS (3)
  1. PRILOSEC (OMEPRAZOLE) [Concomitant]
     Active Substance: OMEPRAZOLE MAGNESIUM
     Indication: GASTRIC DISORDER
     Route: 048
  2. HUMIRA [Suspect]
     Active Substance: ADALIMUMAB
     Indication: CROHN^S DISEASE
     Route: 058
     Dates: start: 201607
  3. EPIDUO [Suspect]
     Active Substance: ADAPALENE\BENZOYL PEROXIDE
     Indication: ACNE
     Dosage: 0,1%
     Route: 061

REACTIONS (3)
  - Rash pustular [Unknown]
  - Cellulitis [Unknown]
  - Lip swelling [Unknown]

NARRATIVE: CASE EVENT DATE: 20160725
